FAERS Safety Report 4684326-2 (Version None)
Quarter: 2005Q2

REPORT INFORMATION
  Report Type: 
  Country: None (occurrence: None)
  Receive Date: 20050607
  Receipt Date: 20050524
  Transmission Date: 20051028
  Serious: Yes (Other)
  Sender: FDA-Public Use
  Company Number: 2005AC00769

PATIENT
  Age: 18973 Day
  Sex: Male

DRUGS (4)
  1. DIPRIVAN [Suspect]
     Indication: ANAESTHESIA
     Route: 042
     Dates: start: 20040206
  2. OMEPRAZOLE [Concomitant]
  3. PAROXETINE HCL [Concomitant]
  4. LORAZEPAM [Concomitant]

REACTIONS (1)
  - PANCREATITIS [None]
